FAERS Safety Report 13059917 (Version 1)
Quarter: 2016Q4

REPORT INFORMATION
  Report Type: Spontaneous
  Country: US (occurrence: US)
  Receive Date: 20161223
  Receipt Date: 20161223
  Transmission Date: 20170207
  Serious: No
  Sender: FDA-Public Use
  Company Number: US-B.I. PHARMACEUTICALS,INC./RIDGEFIELD-2016-BI-086497

PATIENT
  Age: 66 Year
  Sex: Female

DRUGS (2)
  1. SPIRIVA [Suspect]
     Active Substance: TIOTROPIUM BROMIDE MONOHYDRATE
     Indication: CHRONIC OBSTRUCTIVE PULMONARY DISEASE
  2. SPIRIVA [Suspect]
     Active Substance: TIOTROPIUM BROMIDE MONOHYDRATE
     Indication: BRONCHITIS CHRONIC
     Dosage: 2 INHALATIONS FROM ONE CAPSULE;  FORM STRENGTH: 18 MCG; FORMULATION: CAPSULE? ADMINISTRATION CORRECT
     Route: 055
     Dates: start: 200709

REACTIONS (3)
  - Dyspnoea [Unknown]
  - Drug ineffective [Unknown]
  - Product quality issue [Unknown]

NARRATIVE: CASE EVENT DATE: 20161217
